FAERS Safety Report 8186159-1 (Version None)
Quarter: 2012Q1

REPORT INFORMATION
  Report Type: 
  Country: None (occurrence: None)
  Receive Date: 20120306
  Receipt Date: 20120228
  Transmission Date: 20120608
  Serious: Yes (Other)
  Sender: FDA-Public Use
  Company Number: US-PFIZER INC-2012017183

PATIENT
  Sex: Female
  Weight: 58.05 kg

DRUGS (1)
  1. LYRICA [Suspect]
     Indication: FIBROMYALGIA
     Dosage: 225 MG, 2X/DAY
     Route: 048
     Dates: start: 20120110, end: 20120111

REACTIONS (8)
  - DIARRHOEA [None]
  - MIGRAINE [None]
  - MUSCLE TWITCHING [None]
  - FEELING DRUNK [None]
  - MALAISE [None]
  - DYSKINESIA [None]
  - VOMITING [None]
  - HYPERSENSITIVITY [None]
